FAERS Safety Report 25581628 (Version 7)
Quarter: 2025Q4

REPORT INFORMATION
  Report Type: Report from Study
  Country: EU (occurrence: EU)
  Receive Date: 20250719
  Receipt Date: 20251022
  Transmission Date: 20260118
  Serious: Yes (Life-Threatening, Hospitalization, Other)
  Sender: AUROBINDO
  Company Number: EU-AUROBINDO-AUR-APL-2025-035855

PATIENT
  Age: 68 Year
  Sex: Male

DRUGS (56)
  1. BELINOSTAT [Suspect]
     Active Substance: BELINOSTAT
     Indication: T-cell lymphoma stage II
     Dosage: 1000 MILLIGRAM/SQ. METER, CYCLICAL
     Route: 065
     Dates: start: 20250616
  2. BELINOSTAT [Suspect]
     Active Substance: BELINOSTAT
     Dosage: 1000 MILLIGRAM/SQ. METER, CYCLICAL
     Route: 065
     Dates: start: 20250616, end: 20250616
  3. BELINOSTAT [Suspect]
     Active Substance: BELINOSTAT
     Dosage: 1000 MILLIGRAM/SQ. METER, CYCLICAL
     Route: 065
     Dates: start: 20250617, end: 20250617
  4. BELINOSTAT [Suspect]
     Active Substance: BELINOSTAT
     Dosage: 1000 MILLIGRAM/SQ. METER, CYCLICAL
     Route: 065
     Dates: start: 20250618, end: 20250618
  5. BELINOSTAT [Suspect]
     Active Substance: BELINOSTAT
     Dosage: 1000 MILLIGRAM/SQ. METER, CYCLICAL
     Route: 065
     Dates: start: 20250619, end: 20250619
  6. BELINOSTAT [Suspect]
     Active Substance: BELINOSTAT
     Dosage: 1000 MILLIGRAM/SQ. METER, CYCLICAL
     Route: 065
     Dates: start: 20250714, end: 20250714
  7. BELINOSTAT [Suspect]
     Active Substance: BELINOSTAT
     Dosage: 1000 MILLIGRAM/SQ. METER, CYCLICAL
     Route: 065
     Dates: start: 20250715, end: 20250715
  8. BELINOSTAT [Suspect]
     Active Substance: BELINOSTAT
     Dosage: 1000 MILLIGRAM/SQ. METER, CYCLICAL
     Route: 065
     Dates: start: 20250716, end: 20250716
  9. BELINOSTAT [Suspect]
     Active Substance: BELINOSTAT
     Dosage: 1000 MILLIGRAM/SQ. METER, CYCLICAL
     Route: 065
     Dates: start: 20250717, end: 20250717
  10. BELINOSTAT [Suspect]
     Active Substance: BELINOSTAT
     Dosage: 1000 MILLIGRAM/SQ. METER, CYCLICAL
     Route: 065
     Dates: start: 20250718, end: 20250718
  11. DOXORUBICIN [Suspect]
     Active Substance: DOXORUBICIN
     Indication: T-cell lymphoma stage II
     Dosage: 50 MG/M2, CYCLICAL
     Route: 065
     Dates: start: 20250616, end: 20250616
  12. DOXORUBICIN [Suspect]
     Active Substance: DOXORUBICIN
     Dosage: 50 MG/M2, CYCLICAL
     Route: 065
     Dates: start: 20250714, end: 20250714
  13. CYCLOPHOSPHAMIDE [Suspect]
     Active Substance: CYCLOPHOSPHAMIDE
     Indication: T-cell lymphoma stage II
     Dosage: 750 MG/M2, CYCLICAL
     Route: 065
     Dates: start: 20250616, end: 20250616
  14. CYCLOPHOSPHAMIDE [Suspect]
     Active Substance: CYCLOPHOSPHAMIDE
     Dosage: 750 MG/M2, CYCLICAL
     Route: 065
     Dates: start: 20250714, end: 20250714
  15. ONCOVIN [Suspect]
     Active Substance: VINCRISTINE SULFATE
     Indication: T-cell lymphoma stage II
     Dosage: 1.4 MG/M2, CYCLICAL
     Route: 065
     Dates: start: 20250616, end: 20250616
  16. ONCOVIN [Suspect]
     Active Substance: VINCRISTINE SULFATE
     Dosage: 1.4 MG/M2, CYCLICAL
     Route: 065
     Dates: start: 20250714, end: 20250714
  17. PREDNISONE [Suspect]
     Active Substance: PREDNISONE
     Indication: T-cell lymphoma stage II
     Dosage: 100 MILLIGRAM, CYCLICAL
     Route: 048
     Dates: start: 20250616
  18. PREDNISONE [Suspect]
     Active Substance: PREDNISONE
     Dosage: 100 MILLIGRAM, CYCLICAL
     Route: 048
     Dates: start: 20250617
  19. PREDNISONE [Suspect]
     Active Substance: PREDNISONE
     Dosage: 100 MILLIGRAM, CYCLICAL
     Route: 048
     Dates: start: 20250618
  20. PREDNISONE [Suspect]
     Active Substance: PREDNISONE
     Dosage: 100 MILLIGRAM, CYCLICAL
     Route: 048
     Dates: start: 20250619
  21. PREDNISONE [Suspect]
     Active Substance: PREDNISONE
     Dosage: 100 MILLIGRAM, CYCLICAL
     Route: 048
     Dates: start: 20250714
  22. PREDNISONE [Suspect]
     Active Substance: PREDNISONE
     Dosage: 100 MILLIGRAM, CYCLICAL
     Route: 048
     Dates: start: 20250715
  23. PREDNISONE [Suspect]
     Active Substance: PREDNISONE
     Dosage: 100 MILLIGRAM, CYCLICAL
     Route: 048
     Dates: start: 20250716
  24. PREDNISONE [Suspect]
     Active Substance: PREDNISONE
     Dosage: 100 MILLIGRAM, CYCLICAL
     Route: 048
     Dates: start: 20250717
  25. PREDNISONE [Suspect]
     Active Substance: PREDNISONE
     Dosage: 100 MILLIGRAM, CYCLICAL
     Route: 048
     Dates: start: 20250718
  26. VINCRISTINE [Suspect]
     Active Substance: VINCRISTINE
     Indication: T-cell lymphoma stage III
     Dosage: 1.4 MILLIGRAM/SQ. METER, CYCLICAL
     Route: 042
     Dates: start: 20250616
  27. FOLIC ACID [Concomitant]
     Active Substance: FOLIC ACID
     Indication: Supportive care
     Dosage: 5 MILLIGRAM, ONCE A DAY
     Route: 048
     Dates: start: 20250606
  28. VITAMIN B12 [Concomitant]
     Active Substance: CYANOCOBALAMIN
     Indication: Supportive care
     Dosage: 1000 MICROGRAM, ONCE A DAY
     Route: 030
     Dates: start: 20250612
  29. INSULIN LISPRO [Concomitant]
     Active Substance: INSULIN LISPRO
     Indication: Type 2 diabetes mellitus
     Dosage: 16 MILLIGRAM, 3 TIMES A DAY
     Route: 058
     Dates: start: 2005
  30. ATORVASTATIN [Concomitant]
     Active Substance: ATORVASTATIN
     Indication: Dyslipidaemia
     Dosage: 40 MILLIGRAM, ONCE A DAY
     Route: 048
     Dates: start: 1998
  31. INSULIN DEGLUDEC [Concomitant]
     Active Substance: INSULIN DEGLUDEC
     Indication: Type 2 diabetes mellitus
     Dosage: 30 INTERNATIONAL UNIT, ONCE A DAY
     Route: 058
     Dates: start: 2005
  32. GABAPENTIN [Concomitant]
     Active Substance: GABAPENTIN
     Indication: Foraminotomy
     Dosage: 300 MILLIGRAM, TWO TIMES A DAY
     Route: 048
     Dates: start: 20241016
  33. LORAZEPAM [Concomitant]
     Active Substance: LORAZEPAM
     Indication: Foraminotomy
     Dosage: 1 MILLIGRAM, ONCE A DAY
     Route: 048
     Dates: start: 20241016
  34. ESCITALOPRAM [Concomitant]
     Active Substance: ESCITALOPRAM OXALATE
     Indication: Foraminotomy
     Dosage: 15 MILLIGRAM, ONCE A DAY
     Route: 048
     Dates: start: 20241016
  35. ONDANSETRON [Concomitant]
     Active Substance: ONDANSETRON
     Indication: Nausea
     Dosage: 8 MILLIGRAM, 3 TIMES A DAY
     Route: 042
     Dates: start: 20250617
  36. ONDANSETRON [Concomitant]
     Active Substance: ONDANSETRON
     Indication: Vomiting
  37. TRAZODONE HYDROCHLORIDE [Concomitant]
     Active Substance: TRAZODONE HYDROCHLORIDE
     Indication: Foraminotomy
     Dosage: 100 MILLIGRAM, ONCE A DAY
     Route: 048
     Dates: start: 20241016
  38. SEMAGLUTIDE [Concomitant]
     Active Substance: SEMAGLUTIDE
     Indication: Foraminotomy
     Dosage: 14 MILLIGRAM, ONCE A DAY
     Route: 048
     Dates: start: 20241016
  39. SULFAMETHOXAZOLE\TRIMETHOPRIM [Concomitant]
     Active Substance: SULFAMETHOXAZOLE\TRIMETHOPRIM
     Indication: Infection prophylaxis
     Dosage: 800 MILLIGRAM, ONCE A DAY
     Route: 048
     Dates: start: 20250616
  40. LEUCOVORIN CALCIUM [Concomitant]
     Active Substance: LEUCOVORIN CALCIUM
     Indication: Drug therapy
     Dosage: 15 MILLIGRAM, ONCE A DAY
     Route: 048
     Dates: start: 20250616
  41. ACYCLOVIR [Concomitant]
     Active Substance: ACYCLOVIR
     Indication: Infection prophylaxis
     Dosage: 800 MILLIGRAM, ONCE A DAY
     Route: 048
     Dates: start: 20250616
  42. ALLOPURINOL [Concomitant]
     Active Substance: ALLOPURINOL
     Indication: Hyperuricaemia
     Dosage: 300 MILLIGRAM, ONCE A DAY
     Route: 048
     Dates: start: 20250616, end: 20250624
  43. LEVOFLOXACIN [Concomitant]
     Active Substance: LEVOFLOXACIN
     Indication: Infection prophylaxis
     Dosage: 500 MILLIGRAM, ONCE A DAY
     Route: 048
     Dates: start: 20250620
  44. GRANULOCYTE COLONY-STIMULATING FACTOR NOS [Concomitant]
     Active Substance: GRANULOCYTE COLONY-STIMULATING FACTOR NOS
     Indication: Neutropenia
     Dosage: 300 MICROGRAM, ONCE A DAY
     Route: 058
     Dates: start: 20250620
  45. ACETAMINOPHEN [Concomitant]
     Active Substance: ACETAMINOPHEN
     Indication: Product used for unknown indication
     Dosage: 1000 MILLIGRAM, AS NECESSARY
     Route: 042
     Dates: start: 20250618, end: 20250619
  46. PIPERACILLIN SODIUM\TAZOBACTAM SODIUM [Concomitant]
     Active Substance: PIPERACILLIN SODIUM\TAZOBACTAM SODIUM
     Indication: Product used for unknown indication
     Dosage: 1 DOSAGE FORM, ONCE A DAY
     Route: 042
     Dates: start: 20250629, end: 20250629
  47. AMOXICILLIN\CLAVULANIC ACID [Concomitant]
     Active Substance: AMOXICILLIN\CLAVULANIC ACID
     Indication: Product used for unknown indication
     Dosage: UNK, 3 TIMES A DAY (875/125 MILLIGRAM)
     Route: 048
     Dates: start: 20250629
  48. SULFAMETHOXAZOLE\TRIMETHOPRIM [Concomitant]
     Active Substance: SULFAMETHOXAZOLE\TRIMETHOPRIM
     Indication: Prophylaxis
     Dosage: UNK
     Route: 065
     Dates: start: 202507
  49. SODIUM CHLORIDE [Concomitant]
     Active Substance: SODIUM CHLORIDE
     Indication: Supportive care
     Dosage: 500 MILLIMETRE, ONCE A DAY
     Route: 042
     Dates: start: 20250617, end: 20250620
  50. OMEPRAZOLE [Concomitant]
     Active Substance: OMEPRAZOLE
     Indication: Foraminotomy
     Dosage: 20 MILLIGRAM, ONCE A DAY
     Route: 048
     Dates: start: 2022
  51. OMEPRAZOLE [Concomitant]
     Active Substance: OMEPRAZOLE
     Indication: Prophylaxis against gastrointestinal ulcer
  52. MEROPENEM [Concomitant]
     Active Substance: MEROPENEM
     Indication: Septic shock
     Dosage: UNK
     Route: 065
     Dates: start: 202507
  53. VANCOMYCIN [Concomitant]
     Active Substance: VANCOMYCIN
     Indication: Septic shock
     Dosage: UNK
     Route: 065
     Dates: start: 202507
  54. AMIKACIN [Concomitant]
     Active Substance: AMIKACIN
     Indication: Septic shock
     Dosage: UNK
     Route: 065
     Dates: start: 202507
  55. GANCICLOVIR [Concomitant]
     Active Substance: GANCICLOVIR
     Indication: Septic shock
     Dosage: UNK
     Route: 065
     Dates: start: 202507
  56. FILGRASTIM [Concomitant]
     Active Substance: FILGRASTIM
     Indication: Prophylaxis
     Dosage: 300 MICROGRAM, ONCE A DAY
     Route: 058
     Dates: start: 20250620, end: 20250624

REACTIONS (10)
  - Septic shock [Recovered/Resolved]
  - General physical health deterioration [Not Recovered/Not Resolved]
  - Thrombophlebitis [Recovered/Resolved]
  - Vascular access site thrombosis [Not Recovered/Not Resolved]
  - Phlebitis [Recovered/Resolved]
  - Vomiting [Recovered/Resolved]
  - Nausea [Recovered/Resolved]
  - Headache [Recovered/Resolved]
  - Phlebitis [Recovered/Resolved]
  - Injection site thrombosis [Not Recovered/Not Resolved]

NARRATIVE: CASE EVENT DATE: 20250617
